FAERS Safety Report 9687673 (Version 1)
Quarter: 2013Q4

REPORT INFORMATION
  Report Type: Spontaneous
  Country: US (occurrence: US)
  Receive Date: 20131114
  Receipt Date: 20131114
  Transmission Date: 20140711
  Serious: No
  Sender: FDA-Public Use
  Company Number: US-PFIZER INC-2013321014

PATIENT
  Age: 31 Year
  Sex: Male
  Weight: 73.47 kg

DRUGS (4)
  1. VIAGRA [Suspect]
     Indication: ERECTILE DYSFUNCTION
     Dosage: HALF TABLET
     Dates: start: 2013
  2. VIAGRA [Suspect]
     Dosage: ONE TABLET
  3. LANTUS [Concomitant]
     Indication: TYPE 1 DIABETES MELLITUS
     Dosage: 20 IU, UNK
  4. HUMALOG [Concomitant]
     Indication: TYPE 1 DIABETES MELLITUS
     Dosage: UNK (5-10 IU)

REACTIONS (2)
  - Drug ineffective [Unknown]
  - Arthropod bite [Unknown]
